FAERS Safety Report 18802256 (Version 2)
Quarter: 2021Q1

REPORT INFORMATION
  Report Type: Report from Study
  Country: PK (occurrence: PK)
  Receive Date: 20210128
  Receipt Date: 20210208
  Transmission Date: 20210419
  Serious: Yes (Other)
  Sender: FDA-Public Use
  Company Number: NVSC2021PK012310

PATIENT
  Age: 58 Year
  Sex: Male

DRUGS (1)
  1. CO?DIOVAN [Suspect]
     Active Substance: HYDROCHLOROTHIAZIDE\VALSARTAN
     Indication: HYPERTENSION
     Dosage: 1 DF, QD
     Route: 048
     Dates: start: 20181011

REACTIONS (3)
  - Benign prostatic hyperplasia [Unknown]
  - Hypertension [Unknown]
  - Full blood count increased [Not Recovered/Not Resolved]

NARRATIVE: CASE EVENT DATE: 202010
